FAERS Safety Report 19791019 (Version 2)
Quarter: 2021Q3

REPORT INFORMATION
  Report Type: Report from Study
  Country: None (occurrence: HU)
  Receive Date: 20210906
  Receipt Date: 20210917
  Transmission Date: 20211014
  Serious: Yes (Life-Threatening, Hospitalization)
  Sender: FDA-Public Use
  Company Number: HU-ABBVIE-21K-076-4068026-00

PATIENT
  Sex: Male

DRUGS (10)
  1. LIPIDIL SUPRA [Concomitant]
     Active Substance: FENOFIBRATE
     Indication: HYPERLIPIDAEMIA
     Route: 048
     Dates: start: 2007
  2. MILGAMMA N [Concomitant]
     Active Substance: BENFOTIAMINE\CYANOCOBALAMIN\PYRIDOXINE HYDROCHLORIDE
     Indication: PRODUCT USED FOR UNKNOWN INDICATION
     Dosage: 3 TABLET DAILY
     Route: 048
     Dates: start: 202010
  3. RIVOTRIL [Concomitant]
     Active Substance: CLONAZEPAM
     Indication: AFFECTIVE DISORDER
     Route: 048
     Dates: start: 2017
  4. SIRDALUD [Concomitant]
     Active Substance: TIZANIDINE
     Indication: MUSCLE RELAXANT THERAPY
     Route: 048
     Dates: start: 202010
  5. ZYLLT [Concomitant]
     Active Substance: CLOPIDOGREL BISULFATE
     Indication: PROPHYLAXIS
     Dosage: 1 TABLET IN THE MORNING
     Route: 048
     Dates: start: 2007
  6. DUODOPA [Suspect]
     Active Substance: CARBIDOPA\LEVODOPA
     Indication: PARKINSON^S DISEASE
     Dosage: MORNING DOSE: 5 ML; CONTINUOUS DOSE: 4.2 ML/HOUR; EXTRA DOSE: 2.0 ML
     Route: 050
     Dates: start: 20190711
  7. ROSUVASTATIN. [Concomitant]
     Active Substance: ROSUVASTATIN
     Indication: HYPERLIPIDAEMIA
     Dosage: 1 TABLET IN THE EVENING
     Route: 048
     Dates: start: 2007
  8. DUODOPA [Suspect]
     Active Substance: CARBIDOPA\LEVODOPA
  9. LEPONEX [Concomitant]
     Active Substance: CLOZAPINE
     Indication: OBSESSIVE-COMPULSIVE SYMPTOM
     Route: 048
     Dates: start: 201908
  10. MAGNE B6 [Concomitant]
     Active Substance: MAGNESIUM\PYRIDOXINE
     Indication: PRODUCT USED FOR UNKNOWN INDICATION
     Route: 048
     Dates: start: 202010

REACTIONS (6)
  - Suicide attempt [Recovered/Resolved]
  - Mood altered [Unknown]
  - Cognitive disorder [Unknown]
  - Depression [Not Recovered/Not Resolved]
  - Confusional state [Recovered/Resolved]
  - Fluid intake reduced [Not Recovered/Not Resolved]

NARRATIVE: CASE EVENT DATE: 2020
